FAERS Safety Report 21175872 (Version 1)
Quarter: 2022Q3

REPORT INFORMATION
  Report Type: Other
  Country: US (occurrence: None)
  Receive Date: 20220805
  Receipt Date: 20220805
  Transmission Date: 20221027
  Serious: Yes (Hospitalization)
  Sender: FDA-Public Use
  Company Number: US-ROCHE-3081168

PATIENT
  Age: 61 Year
  Sex: Male
  Weight: 73.094 kg

DRUGS (3)
  1. OCREVUS [Suspect]
     Active Substance: OCRELIZUMAB
     Indication: Relapsing-remitting multiple sclerosis
     Dosage: INFUSE 300MG ON WEEK(S) 0 AND WEEK(S) 2 THEN 600MG EVERY 6 MONTH ?STARTED 1 OR 2 YEARS AGO AND STOPP
     Route: 042
  2. AVONEX [Concomitant]
     Active Substance: INTERFERON BETA-1A
  3. CHLORTHALIDONE [Concomitant]
     Active Substance: CHLORTHALIDONE
     Indication: Hypertension

REACTIONS (2)
  - Multiple sclerosis relapse [Recovered/Resolved]
  - Pneumonia [Recovering/Resolving]

NARRATIVE: CASE EVENT DATE: 20220401
